FAERS Safety Report 16272177 (Version 1)
Quarter: 2019Q2

REPORT INFORMATION
  Report Type: Spontaneous
  Country: IT (occurrence: DE)
  Receive Date: 20190503
  Receipt Date: 20190503
  Transmission Date: 20190711
  Serious: Yes (Other)
  Sender: FDA-Public Use
  Company Number: IT-SHIRE-DE201914108

PATIENT

DRUGS (1)
  1. HUMAN COAGULATION FACTOR VIII; HUMAN VON WILLEBRAND FACTOR [Suspect]
     Active Substance: HUMAN COAGULATION FACTOR VIII/VON WILLEBRAND FACTOR COMPLEX
     Indication: FACTOR VIII DEFICIENCY
     Dosage: 100 INTERNATIONAL UNIT, 2X/DAY:BID
     Route: 065

REACTIONS (1)
  - Factor VIII inhibition [Unknown]
